FAERS Safety Report 11540574 (Version 1)
Quarter: 2015Q3

REPORT INFORMATION
  Report Type: Spontaneous
  Country: US (occurrence: US)
  Receive Date: 20150923
  Receipt Date: 20150923
  Transmission Date: 20151125
  Serious: No
  Sender: FDA-Public Use
  Company Number: US-BEH-2015050155

PATIENT
  Age: 52 Year
  Sex: Female
  Weight: 53 kg

DRUGS (21)
  1. PRIVIGEN [Suspect]
     Active Substance: HUMAN IMMUNOGLOBULIN G
     Dosage: 2013; 20 GM VIAL; 50 GM AS DIRECTED
     Route: 042
  2. EPIPEN [Concomitant]
     Active Substance: EPINEPHRINE
  3. SODIUM CHLORIDE. [Concomitant]
     Active Substance: SODIUM CHLORIDE
  4. CLINDAMYCIN [Concomitant]
     Active Substance: CLINDAMYCIN\CLINDAMYCIN PHOSPHATE
  5. CETIRIZINE [Concomitant]
     Active Substance: CETIRIZINE HYDROCHLORIDE
  6. HYDROXYZINE [Concomitant]
     Active Substance: HYDROXYZINE\HYDROXYZINE HYDROCHLORIDE
  7. CALCIUM + VITAMIN D [Concomitant]
     Active Substance: CALCIUM\VITAMIN D
  8. PRIVIGEN [Suspect]
     Active Substance: HUMAN IMMUNOGLOBULIN G
     Dosage: LAST INFUSION 19-/ 20-DEC-2014
     Route: 042
  9. HEPARIN [Concomitant]
     Active Substance: HEPARIN SODIUM
  10. LIDOCAINE. [Concomitant]
     Active Substance: LIDOCAINE
  11. TRIAMCINOLONE [Concomitant]
     Active Substance: TRIAMCINOLONE
  12. CORDRAN [Concomitant]
     Active Substance: FLURANDRENOLIDE
  13. HYDROXYCHLOROQUINE [Concomitant]
     Active Substance: HYDROXYCHLOROQUINE
  14. MULTIVITAMIN [Concomitant]
     Active Substance: VITAMINS
  15. PRIVIGEN [Suspect]
     Active Substance: HUMAN IMMUNOGLOBULIN G
     Indication: DERMATOMYOSITIS
     Dosage: 2013; 10 GM VIAL; 50 GM AS DIRECTED
     Route: 042
  16. PROTOPIC [Concomitant]
     Active Substance: TACROLIMUS
  17. BIOTIN [Concomitant]
     Active Substance: BIOTIN
  18. DIPHENHYDRAMINE. [Concomitant]
     Active Substance: DIPHENHYDRAMINE
  19. VITAMIN D [Concomitant]
     Active Substance: CHOLECALCIFEROL
  20. ACETAMINOPHEN. [Concomitant]
     Active Substance: ACETAMINOPHEN
  21. FLUOXETINE [Concomitant]
     Active Substance: FLUOXETINE\FLUOXETINE HYDROCHLORIDE

REACTIONS (1)
  - Urinary tract infection [Not Recovered/Not Resolved]

NARRATIVE: CASE EVENT DATE: 20150326
